FAERS Safety Report 9360775 (Version 2)
Quarter: 2013Q3

REPORT INFORMATION
  Report Type: Report from Study
  Country: CA (occurrence: CA)
  Receive Date: 20130621
  Receipt Date: 20130815
  Transmission Date: 20140515
  Serious: Yes (Life-Threatening)
  Sender: FDA-Public Use
  Company Number: CA-JNJFOC-20130611046

PATIENT
  Age: 66 Year
  Sex: Female
  Weight: 113 kg

DRUGS (1)
  1. REMICADE [Suspect]
     Indication: ANKYLOSING SPONDYLITIS
     Route: 042
     Dates: start: 20090223, end: 20130129

REACTIONS (2)
  - Hepatic cirrhosis [Unknown]
  - Abasia [Unknown]
